FAERS Safety Report 11847527 (Version 1)
Quarter: 2015Q4

REPORT INFORMATION
  Report Type: Spontaneous
  Country: JP (occurrence: JP)
  Receive Date: 20151217
  Receipt Date: 20151217
  Transmission Date: 20160305
  Serious: Yes (Other)
  Sender: FDA-Public Use
  Company Number: PHJP1900JP000496

PATIENT
  Age: 41 Year
  Sex: Female

DRUGS (1)
  1. VOLTAREN [Suspect]
     Active Substance: DICLOFENAC SODIUM
     Indication: RHEUMATOID ARTHRITIS
     Dosage: 25 MG
     Route: 048
     Dates: start: 197503, end: 19810927

REACTIONS (3)
  - Eyelid ptosis [Recovering/Resolving]
  - Myasthenia gravis [Recovering/Resolving]
  - Diplopia [Recovering/Resolving]
